FAERS Safety Report 7415919-7 (Version None)
Quarter: 2011Q2

REPORT INFORMATION
  Report Type: 
  Country: None (occurrence: None)
  Receive Date: 20110414
  Receipt Date: 20110331
  Transmission Date: 20111010
  Serious: Yes (Hospitalization)
  Sender: FDA-Public Use
  Company Number: CA-JNJFOC-20100704987

PATIENT
  Sex: Male
  Weight: 81 kg

DRUGS (2)
  1. REMICADE [Suspect]
     Indication: ANKYLOSING SPONDYLITIS
     Dosage: STRENGTH: 100 MG IN  1 VIAL  DAILY DOSE: 400 MG Q7 A DAY
     Route: 042
  2. REMICADE [Suspect]
     Indication: CROHN'S DISEASE
     Dosage: STRENGTH: 100 MG IN  1 VIAL  DAILY DOSE: 400 MG Q7 A DAY
     Route: 042

REACTIONS (9)
  - HYPOTENSION [None]
  - CHILLS [None]
  - CHEST DISCOMFORT [None]
  - PALLOR [None]
  - HYPERHIDROSIS [None]
  - TACHYCARDIA [None]
  - INFUSION RELATED REACTION [None]
  - VASCULAR GRAFT [None]
  - TREMOR [None]
